FAERS Safety Report 5956602-4 (Version None)
Quarter: 2008Q4

REPORT INFORMATION
  Report Type: 
  Country: None (occurrence: None)
  Receive Date: 20081104
  Receipt Date: 20080506
  Transmission Date: 20090506
  Serious: No
  Sender: FDA-Public Use
  Company Number: 08H-163-0314246-00

PATIENT
  Age: 53 Year
  Sex: Female
  Weight: 54.4316 kg

DRUGS (1)
  1. VANCOMYCIN HCL [Suspect]
     Indication: INFECTION
     Dosage: 1GM IN 250CC D5W, ONCE, INTRAVENOUS
     Route: 042
     Dates: start: 20080506, end: 20080506

REACTIONS (1)
  - URTICARIA [None]
